FAERS Safety Report 8544073-3 (Version None)
Quarter: 2012Q3

REPORT INFORMATION
  Report Type: 
  Country: None (occurrence: None)
  Receive Date: 20120727
  Receipt Date: 20120717
  Transmission Date: 20120928
  Serious: Yes (Hospitalization)
  Sender: FDA-Public Use
  Company Number: DE-ELI_LILLY_AND_COMPANY-DE201207005779

PATIENT
  Age: 65 Year
  Sex: Male

DRUGS (2)
  1. PLACEBO [Suspect]
     Indication: PANCREATIC CARCINOMA METASTATIC
     Dosage: 2 MG, QD
     Route: 048
     Dates: start: 20110518
  2. GEMCITABINE HYDROCHLORIDE [Suspect]
     Indication: PANCREATIC CARCINOMA METASTATIC
     Dosage: 1000 MG, CYCLIC
     Route: 042
     Dates: start: 20110518

REACTIONS (2)
  - OBSTRUCTION GASTRIC [None]
  - OESOPHAGITIS [None]
